FAERS Safety Report 17407023 (Version 1)
Quarter: 2020Q1

REPORT INFORMATION
  Report Type: Spontaneous
  Country: US (occurrence: US)
  Receive Date: 20200128
  Receipt Date: 20200128
  Transmission Date: 20200409
  Serious: No
  Sender: FDA-Public Use
  Company Number: None

PATIENT
  Age: 53 Year
  Sex: Female

DRUGS (13)
  1. MIDALOZAM [Concomitant]
  2. OCALIVA [Suspect]
     Active Substance: OBETICHOLIC ACID
     Indication: PRIMARY BILIARY CHOLANGITIS
     Dosage: ?          OTHER DOSE:1 TAB;?
     Route: 048
     Dates: start: 20191119
  3. OMEGA-3-6-9 [Concomitant]
  4. FLAX SEED [Concomitant]
     Active Substance: FLAX SEED
  5. FLUMAZENIL. [Concomitant]
     Active Substance: FLUMAZENIL
  6. LORAZEPAM. [Concomitant]
     Active Substance: LORAZEPAM
  7. FEROSUL [Concomitant]
     Active Substance: FERROUS SULFATE
  8. DEMEROL [Concomitant]
     Active Substance: MEPERIDINE HYDROCHLORIDE
  9. URSODIOL. [Concomitant]
     Active Substance: URSODIOL
  10. EZETIMBE [Concomitant]
     Active Substance: EZETIMIBE
  11. FOLIC ACID. [Concomitant]
     Active Substance: FOLIC ACID
  12. NALOXONE [Concomitant]
     Active Substance: NALOXONE
  13. VENLAFAXINE [Concomitant]
     Active Substance: VENLAFAXINE HYDROCHLORIDE

REACTIONS (1)
  - Pruritus [None]

NARRATIVE: CASE EVENT DATE: 20200101
